FAERS Safety Report 4562457-5 (Version None)
Quarter: 2005Q1

REPORT INFORMATION
  Report Type: 
  Country: None (occurrence: None)
  Receive Date: 20050121
  Receipt Date: 20041230
  Transmission Date: 20050727
  Serious: Yes (Hospitalization)
  Sender: FDA-Public Use
  Company Number: EWC050142073

PATIENT
  Age: 56 Year
  Sex: Female

DRUGS (1)
  1. OLANZAPINE [Suspect]
     Indication: SCHIZOAFFECTIVE DISORDER
     Dosage: 10 MG DAY
     Dates: start: 20040820, end: 20041217

REACTIONS (2)
  - DYSLIPIDAEMIA [None]
  - HYPERGLYCAEMIA [None]
